FAERS Safety Report 24378124 (Version 1)
Quarter: 2024Q3

REPORT INFORMATION
  Report Type: Report from Study
  Country: US (occurrence: US)
  Receive Date: 20240930
  Receipt Date: 20240930
  Transmission Date: 20241017
  Serious: Yes (Hospitalization, Other)
  Sender: GILEAD
  Company Number: US-GILEAD-2024-0688913

PATIENT
  Sex: Female

DRUGS (1)
  1. REMDESIVIR [Suspect]
     Active Substance: REMDESIVIR
     Indication: Coronavirus pneumonia
     Dosage: 100 MG, QD
     Route: 042
     Dates: start: 20240914

REACTIONS (2)
  - Coronavirus pneumonia [Not Recovered/Not Resolved]
  - Immunodeficiency [Not Recovered/Not Resolved]
